FAERS Safety Report 5612136-8 (Version None)
Quarter: 2008Q1

REPORT INFORMATION
  Report Type: 
  Country: None (occurrence: None)
  Receive Date: 20080204
  Receipt Date: 20080131
  Transmission Date: 20080703
  Serious: Yes (Hospitalization)
  Sender: FDA-Public Use
  Company Number: CH-BRISTOL-MYERS SQUIBB COMPANY-14063150

PATIENT
  Age: 61 Year
  Sex: Male

DRUGS (3)
  1. CISPLATIN [Suspect]
     Indication: HYPOPHARYNGEAL CANCER
     Route: 041
     Dates: start: 20071106, end: 20071217
  2. LEVOFLOXACIN [Concomitant]
     Indication: CHRONIC OBSTRUCTIVE PULMONARY DISEASE
     Route: 048
     Dates: start: 20071225
  3. MS CONTIN [Concomitant]
     Indication: PAIN
     Dosage: POWDERS, GRANULES
     Route: 048
     Dates: end: 20080102

REACTIONS (1)
  - NEPHROGENIC DIABETES INSIPIDUS [None]
